FAERS Safety Report 8199428-6 (Version None)
Quarter: 2012Q1

REPORT INFORMATION
  Report Type: 
  Country: None (occurrence: None)
  Receive Date: 20120309
  Receipt Date: 20120229
  Transmission Date: 20120608
  Serious: Yes (Hospitalization, Other)
  Sender: FDA-Public Use
  Company Number: US-ABBOTT-08P-163-0462228-00

PATIENT
  Sex: Female
  Weight: 54.48 kg

DRUGS (12)
  1. UNSPECIFIED PAIN MEDICATION [Concomitant]
     Indication: PAIN
     Route: 042
     Dates: start: 20080118, end: 20080119
  2. XANAX [Concomitant]
     Indication: ANXIETY
     Route: 048
     Dates: end: 20071124
  3. HUMIRA [Suspect]
     Indication: CROHN'S DISEASE
     Route: 058
     Dates: start: 20070101, end: 20090501
  4. TYLENOL [Concomitant]
     Indication: PRODUCT USED FOR UNKNOWN INDICATION
     Route: 048
  5. HUMIRA [Suspect]
     Route: 058
     Dates: start: 20091101, end: 20110601
  6. MULTI-VITAMINS [Concomitant]
     Indication: PREGNANCY
     Route: 048
     Dates: start: 20071126
  7. XANAX [Concomitant]
     Route: 048
     Dates: start: 20071125
  8. LORTAB [Concomitant]
     Indication: PAIN
     Route: 042
     Dates: start: 20080118, end: 20080119
  9. VITAMIN B-12 [Concomitant]
     Indication: PRODUCT USED FOR UNKNOWN INDICATION
     Route: 050
  10. XANAX [Concomitant]
     Dosage: 3 IN 1 DAY, AS NEEDED
  11. FLINTSTONES MULTIVITAMINS WITH IRON [Concomitant]
     Indication: PREGNANCY
     Route: 048
     Dates: start: 20071214, end: 20080307
  12. LYRICA [Concomitant]
     Indication: FIBROMYALGIA
     Route: 048
     Dates: end: 20071210

REACTIONS (6)
  - GLUCOSE TOLERANCE TEST ABNORMAL [None]
  - PREMATURE LABOUR [None]
  - HAEMORRHAGE [None]
  - PYREXIA [None]
  - PRE-ECLAMPSIA [None]
  - AMNIORRHOEA [None]
